FAERS Safety Report 8010426-5 (Version None)
Quarter: 2011Q4

REPORT INFORMATION
  Report Type: 
  Country: None (occurrence: None)
  Receive Date: 20111228
  Receipt Date: 20111219
  Transmission Date: 20120403
  Serious: Yes (Hospitalization)
  Sender: FDA-Public Use
  Company Number: US-BAYER-2011-031374

PATIENT
  Age: 21 Year
  Sex: Female
  Weight: 100 kg

DRUGS (5)
  1. YASMIN [Suspect]
     Indication: CONTRACEPTION
     Dosage: UNK
     Route: 048
     Dates: start: 20050101
  2. KEFLEX [Concomitant]
     Indication: TONSILLECTOMY
     Dosage: UNK
     Dates: start: 20080421
  3. TYLENOL W/ CODEINE NO. 3 [Concomitant]
     Indication: TONSILLECTOMY
     Dosage: UNK
     Dates: start: 20080421
  4. GARDASIL [Concomitant]
  5. YAZ [Suspect]
     Indication: CONTRACEPTION
     Dosage: UNK
     Route: 048
     Dates: end: 20080501

REACTIONS (5)
  - PANCREATITIS [None]
  - CHOLELITHIASIS [None]
  - ABDOMINAL PAIN UPPER [None]
  - CHOLECYSTITIS CHRONIC [None]
  - PAIN [None]
